FAERS Safety Report 8297680 (Version 2)
Quarter: 2013Q4

REPORT INFORMATION
  Report Type: Spontaneous
  Country: US (occurrence: US)
  Receive Date: 20111219
  Receipt Date: 20131223
  Transmission Date: 20140711
  Serious: Yes (Other)
  Sender: FDA-Public Use
  Company Number: US-BAYER-2011-117963

PATIENT
  Age: 45 Year
  Sex: Female

DRUGS (4)
  1. YASMIN [Suspect]
     Dosage: UNK
     Route: 048
     Dates: start: 200309, end: 200709
  2. ASA [Concomitant]
     Dosage: 81 MG, UNK
  3. TORADOL [Concomitant]
  4. PRILOSEC [Concomitant]

REACTIONS (6)
  - Gallbladder disorder [None]
  - Cholecystitis chronic [None]
  - Post cholecystectomy syndrome [None]
  - Gallbladder pain [None]
  - Injury [None]
  - Anxiety [None]
